FAERS Safety Report 9190413 (Version 1)
Quarter: 2013Q1

REPORT INFORMATION
  Report Type: Spontaneous
  Country: CZ (occurrence: CZ)
  Receive Date: 20130326
  Receipt Date: 20130326
  Transmission Date: 20140127
  Serious: Yes (Other)
  Sender: FDA-Public Use
  Company Number: CZ-ASTELLAS-2013EU002577

PATIENT
  Age: 53 Year
  Sex: Female

DRUGS (1)
  1. SOLIFENACIN [Suspect]
     Dosage: 5 MG, UID/QD
     Route: 065

REACTIONS (5)
  - Constipation [Recovered/Resolved]
  - Haematochezia [Recovering/Resolving]
  - Vulvovaginal dryness [Recovering/Resolving]
  - Burning sensation [Recovering/Resolving]
  - Pruritus [Recovering/Resolving]
